FAERS Safety Report 5774866-7 (Version None)
Quarter: 2008Q2

REPORT INFORMATION
  Report Type: 
  Country: None (occurrence: None)
  Receive Date: 20080617
  Receipt Date: 20080604
  Transmission Date: 20081010
  Serious: Yes (Hospitalization)
  Sender: FDA-Public Use
  Company Number: ES-ELI_LILLY_AND_COMPANY-ES200806002431

PATIENT
  Age: 76 Year
  Sex: Female

DRUGS (3)
  1. FORTEO [Suspect]
     Indication: OSTEOPOROSIS
     Dosage: 20 UG, UNK
     Route: 058
     Dates: start: 20070301
  2. BIPRETERAX [Concomitant]
     Indication: CARDIAC DISORDER
     Dosage: UNK, UNK
  3. ADIRO [Concomitant]
     Indication: CARDIAC DISORDER
     Dosage: UNK, UNK

REACTIONS (4)
  - ANXIETY [None]
  - CARDIAC DISORDER [None]
  - FATIGUE [None]
  - MALAISE [None]
